FAERS Safety Report 7715766-2 (Version None)
Quarter: 2011Q3

REPORT INFORMATION
  Report Type: 
  Country: None (occurrence: None)
  Receive Date: 20110829
  Receipt Date: 20110824
  Transmission Date: 20111222
  Serious: Yes (Hospitalization, Other)
  Sender: FDA-Public Use
  Company Number: US-AMGEN-QUU356762

PATIENT
  Sex: Female

DRUGS (1)
  1. ENBREL [Suspect]
     Indication: RHEUMATOID ARTHRITIS
     Dosage: 25 MG, Q2WK
     Route: 064
     Dates: start: 20040517

REACTIONS (9)
  - HEART DISEASE CONGENITAL [None]
  - FEEDING DISORDER NEONATAL [None]
  - DYSPNOEA [None]
  - CARDIAC SEPTAL DEFECT [None]
  - WOUND DRAINAGE [None]
  - WOUND COMPLICATION [None]
  - FATIGUE [None]
  - CYANOSIS NEONATAL [None]
  - ERYTHEMA [None]
